FAERS Safety Report 8008031-X (Version None)
Quarter: 2011Q4

REPORT INFORMATION
  Report Type: 
  Country: None (occurrence: None)
  Receive Date: 20111227
  Receipt Date: 20111220
  Transmission Date: 20120403
  Serious: Yes (Other)
  Sender: FDA-Public Use
  Company Number: PHHY2011AU111710

PATIENT
  Sex: Female

DRUGS (4)
  1. VITAMIN D [Concomitant]
     Dosage: UNK UKN, UNK
  2. LEXAPRO [Concomitant]
     Dosage: UNK UKN, UNK
  3. MULTI-VITAMINS [Concomitant]
     Dosage: UNK UKN, UNK
  4. GILENYA [Suspect]
     Dosage: UNK UKN, UNK

REACTIONS (6)
  - CONTUSION [None]
  - MENORRHAGIA [None]
  - MENSTRUAL DISORDER [None]
  - BASAL CELL CARCINOMA [None]
  - PIGMENTATION DISORDER [None]
  - LIVER FUNCTION TEST ABNORMAL [None]
